FAERS Safety Report 4725097-0 (Version None)
Quarter: 2005Q3

REPORT INFORMATION
  Report Type: 
  Country: None (occurrence: None)
  Receive Date: 20050721
  Receipt Date: 20050713
  Transmission Date: 20060218
  Serious: Yes (Hospitalization)
  Sender: FDA-Public Use
  Company Number: CERZ-10873

PATIENT
  Age: 44 Year
  Sex: Male
  Weight: 93.4 kg

DRUGS (5)
  1. CEREZYME [Suspect]
     Indication: GAUCHER'S DISEASE
     Dosage: 45 U/KG Q2WKS IV
     Route: 042
     Dates: start: 20050503
  2. CEREZYME [Suspect]
     Indication: GAUCHER'S DISEASE
     Dosage: 60 U/KG Q2WKS IV
     Route: 042
     Dates: start: 20050308, end: 20050503
  3. CEREZYME [Suspect]
     Indication: GAUCHER'S DISEASE
     Dosage: 15 U/KG Q4WKS IV
     Route: 042
     Dates: start: 20020801, end: 20050308
  4. CEREZYME [Suspect]
     Indication: GAUCHER'S DISEASE
     Dates: start: 19940728
  5. ONDANSETRON [Concomitant]

REACTIONS (9)
  - ASEPTIC NECROSIS BONE [None]
  - HEADACHE [None]
  - INSOMNIA [None]
  - MIGRAINE [None]
  - MUSCULOSKELETAL PAIN [None]
  - NAUSEA [None]
  - NEUROPATHIC PAIN [None]
  - PAIN IN EXTREMITY [None]
  - PLANTAR FASCIITIS [None]
